FAERS Safety Report 22164185 (Version 1)
Quarter: 2023Q2

REPORT INFORMATION
  Report Type: Spontaneous
  Country: JP (occurrence: JP)
  Receive Date: 20230402
  Receipt Date: 20230402
  Transmission Date: 20230721
  Serious: Yes (Other)
  Sender: FDA-Public Use
  Company Number: JP-BAYER-2023A041427

PATIENT
  Age: 81 Year
  Sex: Female

DRUGS (1)
  1. RIVAROXABAN [Suspect]
     Active Substance: RIVAROXABAN
     Indication: Product used for unknown indication
     Dosage: DAILY DOSE 5 MG
     Route: 048
     Dates: start: 202301

REACTIONS (2)
  - Anaemia [Not Recovered/Not Resolved]
  - Haemoglobin decreased [Unknown]
